FAERS Safety Report 12991639 (Version 3)
Quarter: 2017Q1

REPORT INFORMATION
  Report Type: Spontaneous
  Country: RU (occurrence: RU)
  Receive Date: 20161201
  Receipt Date: 20170201
  Transmission Date: 20170428
  Serious: Yes (Other)
  Sender: FDA-Public Use
  Company Number: PHHY2016RU162656

PATIENT
  Age: 58 Year
  Sex: Female

DRUGS (2)
  1. MEKINIST [Suspect]
     Active Substance: TRAMETINIB DIMETHYL SULFOXIDE
     Indication: MALIGNANT MELANOMA
     Dosage: 2 MG, UNK
     Route: 048
     Dates: start: 20161117, end: 20161125
  2. TAFINLAR [Suspect]
     Active Substance: DABRAFENIB MESYLATE
     Indication: MALIGNANT MELANOMA
     Dosage: 150 MG, BID
     Route: 048
     Dates: start: 20161117

REACTIONS (4)
  - Lipase increased [Not Recovered/Not Resolved]
  - Amylase increased [Recovered/Resolved]
  - Malignant neoplasm progression [Unknown]
  - Blood lactate dehydrogenase increased [Unknown]

NARRATIVE: CASE EVENT DATE: 20161124
